FAERS Safety Report 12784302 (Version 1)
Quarter: 2016Q3

REPORT INFORMATION
  Report Type: Spontaneous
  Country: DE (occurrence: DE)
  Receive Date: 20160927
  Receipt Date: 20160927
  Transmission Date: 20161109
  Serious: Yes (Other)
  Sender: FDA-Public Use
  Company Number: DE-BEH-200409016

PATIENT
  Sex: Female

DRUGS (1)
  1. BERINERT P [Suspect]
     Active Substance: HUMAN C1-ESTERASE INHIBITOR
     Dosage: DAILY DOSE QUANTITY: 500, DAILY DOSE UNIT: IU
     Dates: start: 20030124

REACTIONS (2)
  - Suspected transmission of an infectious agent via product [None]
  - Hepatitis B [Unknown]
